FAERS Safety Report 5550065-9 (Version None)
Quarter: 2007Q4

REPORT INFORMATION
  Report Type: 
  Country: None (occurrence: None)
  Receive Date: 20071212
  Receipt Date: 20070423
  Transmission Date: 20080405
  Serious: No
  Sender: FDA-Public Use
  Company Number: US-AMGEN-KDL220080

PATIENT
  Sex: Female

DRUGS (6)
  1. ENBREL [Suspect]
     Indication: RHEUMATOID ARTHRITIS
     Route: 058
     Dates: start: 20060321
  2. METHOTREXATE [Concomitant]
     Route: 048
     Dates: start: 20050601
  3. LIPITOR [Concomitant]
  4. ZOLOFT [Concomitant]
  5. ZESTRIL [Concomitant]
  6. OXYCODONE HCL [Concomitant]

REACTIONS (2)
  - INJECTION SITE IRRITATION [None]
  - INJECTION SITE PAIN [None]
